FAERS Safety Report 11050662 (Version 3)
Quarter: 2015Q2

REPORT INFORMATION
  Report Type: Spontaneous
  Country: US (occurrence: None)
  Receive Date: 20150417
  Receipt Date: 20150616
  Transmission Date: 20150821
  Serious: Yes (Hospitalization)
  Sender: FDA-Public Use
  Company Number: US-H14001-15-00555

PATIENT
  Age: 46 Year
  Sex: Male

DRUGS (23)
  1. WARFARIN (WARFARIN) [Suspect]
     Active Substance: WARFARIN
     Indication: DEEP VEIN THROMBOSIS
  2. ZETIA [Concomitant]
     Active Substance: EZETIMIBE
  3. FLUDARABINE [Suspect]
     Active Substance: FLUDARABINE PHOSPHATE
     Indication: CHRONIC LYMPHOCYTIC LEUKAEMIA
     Dosage: 25 MG/M2, DAYS 1-4
     Route: 042
     Dates: start: 20130429, end: 20130715
  4. LYRICA (PREGABALIN) ?? [Concomitant]
  5. WARFARIN (WARFARIN) [Suspect]
     Active Substance: WARFARIN
     Indication: ATRIAL FIBRILLATION
  6. SYNTHROID [Concomitant]
     Active Substance: LEVOTHYROXINE SODIUM
  7. ETOPOSIDE (ETOPOSIDE) (UNKNOWN) (ETOPOSIDE) [Suspect]
     Active Substance: ETOPOSIDE
     Indication: CHRONIC LYMPHOCYTIC LEUKAEMIA
     Dosage: 50 MG/M2, D
     Route: 042
     Dates: start: 20130429, end: 20130715
  8. PREDNISONE (PREDNISONE) (UNKNOWN) (PREDNISONE) [Suspect]
     Active Substance: PREDNISONE
     Indication: CHRONIC LYMPHOCYTIC LEUKAEMIA
     Dosage: 6 MG/M2, D
     Route: 048
     Dates: start: 20130429, end: 20130715
  9. CYCLOPHOSPHAMIDE (CYCLOPHOSPHAMIDE) (UNKNOWN) (CYCLOPHOSAPHAMIDE) [Suspect]
     Active Substance: CYCLOPHOSPHAMIDE
     Indication: CHRONIC LYMPHOCYTIC LEUKAEMIA
     Dosage: 750 MG/M2, DAY 5
     Route: 042
     Dates: start: 20130503, end: 20130715
  10. LOPRESSOR [Concomitant]
     Active Substance: METOPROLOL TARTRATE
  11. SENOKOT-S [Concomitant]
     Active Substance: DOCUSATE SODIUM\SENNOSIDES
  12. DOXORUBICIN (DOXORUBICIN) (UNKNOWN) (DOXORUBICIN) [Suspect]
     Active Substance: DOXORUBICIN
     Indication: CHRONIC LYMPHOCYTIC LEUKAEMIA
     Dosage: 10 MG/M2, D
     Route: 042
     Dates: start: 20130429, end: 20130715
  13. ASPIRIN. [Suspect]
     Active Substance: ASPIRIN
     Indication: ATRIAL FIBRILLATION
  14. LIPITOR [Concomitant]
     Active Substance: ATORVASTATIN CALCIUM
  15. POTASSIUM [Concomitant]
     Active Substance: POTASSIUM
  16. RITUXAN [Suspect]
     Active Substance: RITUXIMAB
     Indication: CHRONIC LYMPHOCYTIC LEUKAEMIA
     Dosage: 375 MG/M2, DAY 1
     Route: 042
     Dates: start: 20130429, end: 20130715
  17. LASIX [Concomitant]
     Active Substance: FUROSEMIDE
  18. VINCRISTINE (VINCRISTINE) (UNKNOWN) (VINCRISTINE) [Suspect]
     Active Substance: VINCRISTINE
     Indication: CHRONIC LYMPHOCYTIC LEUKAEMIA
     Dosage: 0.4 MG/M2, D
     Route: 042
     Dates: start: 20130429, end: 20130715
  19. ALLOPURINOL. [Concomitant]
     Active Substance: ALLOPURINOL
  20. PROZAC [Concomitant]
     Active Substance: FLUOXETINE HYDROCHLORIDE
  21. PROTONIX [Concomitant]
     Active Substance: PANTOPRAZOLE SODIUM
  22. AMITRIPTYLINE [Concomitant]
     Active Substance: AMITRIPTYLINE
  23. AMBIEN [Concomitant]
     Active Substance: ZOLPIDEM TARTRATE

REACTIONS (2)
  - Thrombocytopenia [None]
  - Subdural haematoma [None]

NARRATIVE: CASE EVENT DATE: 20130521
